FAERS Safety Report 7076602-3 (Version None)
Quarter: 2010Q4

REPORT INFORMATION
  Report Type: 
  Country: None (occurrence: None)
  Receive Date: 20101101
  Receipt Date: 20101019
  Transmission Date: 20110411
  Serious: Yes (Other)
  Sender: FDA-Public Use
  Company Number: US-PFIZER INC-2010133505

PATIENT
  Sex: Male
  Weight: 65.76 kg

DRUGS (10)
  1. LYRICA [Suspect]
     Indication: FIBROMYALGIA
     Dosage: UNK
     Route: 048
     Dates: start: 20080101
  2. DILANTIN-125 [Suspect]
     Dosage: UNK
  3. PAXIL [Concomitant]
     Indication: PAIN
     Dosage: UNK
  4. PAXIL [Concomitant]
     Indication: DEPRESSION
  5. TAMSULOSIN [Concomitant]
     Indication: PROSTATOMEGALY
     Dosage: UNK
  6. VERAPAMIL [Concomitant]
     Indication: CARDIAC DISORDER
     Dosage: UNK
  7. NITROGLYCERIN [Concomitant]
     Indication: CARDIAC DISORDER
     Dosage: UNK
  8. KEPPRA [Concomitant]
     Indication: CONVULSION
     Dosage: UNK
  9. HYDROCODONE [Concomitant]
     Indication: PAIN
     Dosage: UNK
  10. MORPHINE [Concomitant]
     Indication: PAIN
     Dosage: UNK

REACTIONS (4)
  - ANGER [None]
  - ANTICONVULSANT DRUG LEVEL DECREASED [None]
  - CONFUSIONAL STATE [None]
  - DRUG HYPERSENSITIVITY [None]
